FAERS Safety Report 13901013 (Version 1)
Quarter: 2017Q3

REPORT INFORMATION
  Report Type: Report from Study
  Country: US (occurrence: US)
  Receive Date: 20170824
  Receipt Date: 20170824
  Transmission Date: 20171127
  Serious: Yes (Other)
  Sender: FDA-Public Use
  Company Number: 2017-ECIPHARMA-000001

PATIENT
  Age: 37 Year
  Sex: Female
  Weight: 78 kg

DRUGS (1)
  1. HYDROCODONE BITARTARATE AND GUAIFENESIN TABLETS, 5 MG/400 MG [Suspect]
     Active Substance: GUAIFENESIN\HYDROCODONE BITARTRATE
     Indication: ANTITUSSIVE THERAPY
     Route: 048
     Dates: start: 20170615, end: 20170615

REACTIONS (1)
  - Foetal death [Unknown]
